FAERS Safety Report 11736789 (Version 1)
Quarter: 2015Q4

REPORT INFORMATION
  Report Type: Spontaneous
  Country: None (occurrence: None)
  Receive Date: 20151112
  Receipt Date: 20151112
  Transmission Date: 20160304
  Serious: Yes (Hospitalization, Other)
  Sender: FDA-Public Use
  Company Number: None

PATIENT
  Age: 34 Year
  Sex: Male
  Weight: 79.38 kg

DRUGS (8)
  1. CIPRO [Suspect]
     Active Substance: CIPROFLOXACIN HYDROCHLORIDE
     Indication: URINARY TRACT INFECTION
     Dosage: 500 TWICE DAILY TAKEN BY MOUTH
     Route: 048
     Dates: start: 20151104, end: 20151110
  2. TOPAMAX [Concomitant]
     Active Substance: TOPIRAMATE
  3. NADOLOL. [Concomitant]
     Active Substance: NADOLOL
  4. CIPRO [Suspect]
     Active Substance: CIPROFLOXACIN HYDROCHLORIDE
     Indication: PROSTATITIS
     Dosage: 500 TWICE DAILY TAKEN BY MOUTH
     Route: 048
     Dates: start: 20151104, end: 20151110
  5. BOTOX [Concomitant]
     Active Substance: ONABOTULINUMTOXINA
  6. LYRICA [Concomitant]
     Active Substance: PREGABALIN
  7. LISINOPRIL. [Concomitant]
     Active Substance: LISINOPRIL
  8. AMLODIPINE [Concomitant]
     Active Substance: AMLODIPINE BESYLATE

REACTIONS (10)
  - Groin pain [None]
  - Neck pain [None]
  - Myalgia [None]
  - Headache [None]
  - Chills [None]
  - Tinnitus [None]
  - Tremor [None]
  - Perineal pain [None]
  - Neuropathy peripheral [None]
  - Back pain [None]

NARRATIVE: CASE EVENT DATE: 20151110
